FAERS Safety Report 9675917 (Version 4)
Quarter: 2015Q1

REPORT INFORMATION
  Report Type: Spontaneous
  Country: CH (occurrence: CH)
  Receive Date: 20131107
  Receipt Date: 20141214
  Transmission Date: 20150721
  Serious: Yes (Hospitalization, Other)
  Sender: FDA-Public Use
  Company Number: CH-MYLANLABS-2013S1024566

PATIENT

DRUGS (12)
  1. DIAZEPAM. [Suspect]
     Active Substance: DIAZEPAM
     Dosage: 90 MG, UNK
     Route: 048
  2. QUETIAPINE [Suspect]
     Active Substance: QUETIAPINE
     Indication: OFF LABEL USE
  3. ZOLPIDEM [Suspect]
     Active Substance: ZOLPIDEM\ZOLPIDEM TARTRATE
     Dosage: 50 MG, UNK
     Route: 048
  4. ZOLPIDEM [Suspect]
     Active Substance: ZOLPIDEM\ZOLPIDEM TARTRATE
     Indication: INTENTIONAL OVERDOSE
  5. ZOLPIDEM [Suspect]
     Active Substance: ZOLPIDEM\ZOLPIDEM TARTRATE
     Indication: OFF LABEL USE
  6. RIVAROXABAN [Suspect]
     Active Substance: RIVAROXABAN
     Dosage: 98 TABLETS
     Route: 048
  7. DIAZEPAM. [Suspect]
     Active Substance: DIAZEPAM
     Indication: OFF LABEL USE
  8. RIVAROXABAN [Suspect]
     Active Substance: RIVAROXABAN
     Indication: OFF LABEL USE
  9. DIAZEPAM. [Suspect]
     Active Substance: DIAZEPAM
     Indication: INTENTIONAL OVERDOSE
  10. QUETIAPINE [Suspect]
     Active Substance: QUETIAPINE
     Dosage: 1 G, UNK
     Route: 048
  11. QUETIAPINE [Suspect]
     Active Substance: QUETIAPINE
     Indication: INTENTIONAL OVERDOSE
  12. RIVAROXABAN [Suspect]
     Active Substance: RIVAROXABAN
     Indication: INTENTIONAL OVERDOSE

REACTIONS (5)
  - Coagulopathy [Recovered/Resolved]
  - Suicide attempt [Recovering/Resolving]
  - Intentional overdose [Recovering/Resolving]
  - International normalised ratio increased [Recovered/Resolved]
  - Coagulation time prolonged [Recovering/Resolving]
